FAERS Safety Report 6919013-0 (Version None)
Quarter: 2010Q3

REPORT INFORMATION
  Report Type: 
  Country: None (occurrence: None)
  Receive Date: 20100811
  Receipt Date: 20100728
  Transmission Date: 20110219
  Serious: Yes (Other)
  Sender: FDA-Public Use
  Company Number: BE-ELI_LILLY_AND_COMPANY-BE201001005448

PATIENT
  Sex: Male
  Weight: 30 kg

DRUGS (1)
  1. STRATTERA [Suspect]
     Indication: ATTENTION DEFICIT/HYPERACTIVITY DISORDER
     Dosage: 40 MG/KG, UNKNOWN
     Route: 065
     Dates: start: 20080701

REACTIONS (3)
  - GASTROENTERITIS [None]
  - SUBCUTANEOUS ABSCESS [None]
  - SUPERINFECTION [None]
